FAERS Safety Report 10667030 (Version 1)
Quarter: 2014Q4

REPORT INFORMATION
  Report Type: Spontaneous
  Country: US (occurrence: US)
  Receive Date: 20141222
  Receipt Date: 20141222
  Transmission Date: 20150529
  Serious: No
  Sender: FDA-Public Use
  Company Number: US-BIOGENIDEC-2014BI134493

PATIENT
  Age: 51 Year
  Sex: Female

DRUGS (1)
  1. TECFIDERA [Suspect]
     Active Substance: DIMETHYL FUMARATE
     Indication: MULTIPLE SCLEROSIS
     Route: 048
     Dates: start: 20140626

REACTIONS (4)
  - Balance disorder [Not Recovered/Not Resolved]
  - Erythema [Not Recovered/Not Resolved]
  - Pain [Not Recovered/Not Resolved]
  - Fatigue [Not Recovered/Not Resolved]

NARRATIVE: CASE EVENT DATE: 20140626
